FAERS Safety Report 24379176 (Version 1)
Quarter: 2024Q3

REPORT INFORMATION
  Report Type: Spontaneous
  Country: CA (occurrence: CA)
  Receive Date: 20240930
  Receipt Date: 20240930
  Transmission Date: 20241016
  Serious: Yes (Hospitalization)
  Sender: SANDOZ
  Company Number: CA-SANDOZ-SDZ2024CA083652

PATIENT
  Age: 32 Year
  Sex: Female

DRUGS (6)
  1. OLANZAPINE [Suspect]
     Active Substance: OLANZAPINE
     Indication: Schizophrenia
     Dosage: 30 MG, TID
     Route: 050
  2. TYSABRI [Suspect]
     Active Substance: NATALIZUMAB
     Dosage: 300 MG, Q4W
     Route: 042
  3. TYSABRI [Suspect]
     Active Substance: NATALIZUMAB
     Dosage: 300 MG, Q4W
     Route: 050
  4. TYSABRI [Suspect]
     Active Substance: NATALIZUMAB
     Indication: Multiple sclerosis
     Dosage: 300 MG, 1 EVERY 6 WEEKS
     Route: 050
  5. TYSABRI [Suspect]
     Active Substance: NATALIZUMAB
     Dosage: 300 MG, 1 EVERY 6 WEEKS
     Route: 050
  6. TYSABRI [Suspect]
     Active Substance: NATALIZUMAB
     Dosage: 300 MG, 1 EVERY 6 WEEKS
     Route: 050

REACTIONS (3)
  - Schizophrenia [Not Recovered/Not Resolved]
  - Somnolence [Not Recovered/Not Resolved]
  - Prescribed underdose [Not Recovered/Not Resolved]
